FAERS Safety Report 9989806 (Version 1)
Quarter: 2014Q1

REPORT INFORMATION
  Report Type: Report from Study
  Country: US (occurrence: US)
  Receive Date: 20140310
  Receipt Date: 20140310
  Transmission Date: 20141002
  Serious: No
  Sender: FDA-Public Use
  Company Number: US-ABBVIE-13P-163-1136260-00

PATIENT
  Sex: Female

DRUGS (16)
  1. HUMIRA [Suspect]
     Indication: RHEUMATOID ARTHRITIS
     Dates: start: 2008, end: 2011
  2. DICLOFENAC [Concomitant]
     Indication: RHEUMATOID ARTHRITIS
     Dosage: 75 MG DAILY
  3. LIPOFEN [Concomitant]
     Indication: BLOOD CHOLESTEROL INCREASED
     Dosage: 120 MG DAILY
  4. FERROUS SULFATE [Concomitant]
     Indication: MINERAL SUPPLEMENTATION
     Dosage: 325 MG DAILY
  5. KLOR-CON [Concomitant]
     Indication: MINERAL SUPPLEMENTATION
     Dosage: 10 MG DAILY
  6. FOLIC ACID [Concomitant]
     Indication: VITAMIN SUPPLEMENTATION
     Dosage: 800 MG DAILY
  7. METOPROLOL [Concomitant]
     Indication: HYPERTENSION
     Dosage: 50 MG DAILY
  8. VERAPAMIL [Concomitant]
     Indication: HYPERTENSION
     Dosage: 250 MG DAILY
  9. GLIMEPIRIDE [Concomitant]
     Indication: DIABETES MELLITUS
     Dosage: 4 MG DAILY
  10. FUROSEMIDE [Concomitant]
     Indication: FLUID RETENTION
     Dosage: 40 MG DAILY
  11. SPIRONOLACTONE [Concomitant]
     Indication: FLUID RETENTION
     Dosage: 25MG DAILY
  12. TIZANIDINE [Concomitant]
     Indication: MUSCLE RELAXANT THERAPY
  13. GABAPENTIN [Concomitant]
     Indication: NEURALGIA
  14. HYDROCODONE [Concomitant]
     Indication: PAIN
  15. TRAMADOL [Concomitant]
     Indication: PAIN
  16. HYDROXYZINE [Concomitant]
     Indication: PRURITUS
     Dosage: AS NEEDED

REACTIONS (1)
  - Drug ineffective [Not Recovered/Not Resolved]
